FAERS Safety Report 4801217-4 (Version None)
Quarter: 2005Q4

REPORT INFORMATION
  Report Type: 
  Country: None (occurrence: None)
  Receive Date: 20051011
  Receipt Date: 20050929
  Transmission Date: 20060501
  Serious: Yes (Hospitalization)
  Sender: FDA-Public Use
  Company Number: HQWYE597631MAR05

PATIENT
  Age: 38 Year
  Sex: Female

DRUGS (3)
  1. PANTOLOC (PANTOPRAZOLE, TABLET, DELAYED RELEASE) [Suspect]
     Dosage: 40 MG 1X PER 1 DAY ORAL
     Route: 048
     Dates: start: 20030606, end: 20030701
  2. CELEBREX [Suspect]
     Dosage: 200 MG 1X PER 1 DAY ORAL
     Route: 048
     Dates: start: 20030901, end: 20031201
  3. NAPROXEN [Suspect]
     Dosage: 500 MG 1X PER 1 DAY ORAL
     Route: 048
     Dates: start: 20030606, end: 20030701

REACTIONS (2)
  - CHEST PAIN [None]
  - TUBULOINTERSTITIAL NEPHRITIS [None]
